FAERS Safety Report 5924951-1 (Version None)
Quarter: 2008Q4

REPORT INFORMATION
  Report Type: 
  Country: None (occurrence: None)
  Receive Date: 20081015
  Receipt Date: 20081015
  Transmission Date: 20090506
  Serious: Yes (Hospitalization)
  Sender: FDA-Public Use
  Company Number: None

PATIENT
  Sex: Male
  Weight: 70.7611 kg

DRUGS (3)
  1. ABRAXENE, 100 MILLIGRAMS PER VIAL, ABRAXIS [Suspect]
     Indication: PANCREATIC CARCINOMA
     Dosage: 100 MG/M2 Q WK IV
     Route: 042
     Dates: start: 20080813
  2. ZANTAC [Concomitant]
  3. PROTONIC [Concomitant]

REACTIONS (1)
  - PYREXIA [None]
